FAERS Safety Report 5761675-8 (Version None)
Quarter: 2008Q2

REPORT INFORMATION
  Report Type: 
  Country: None (occurrence: None)
  Receive Date: 20080602
  Receipt Date: 20080523
  Transmission Date: 20081010
  Serious: Yes (Other)
  Sender: FDA-Public Use
  Company Number: AR_50/08

PATIENT

DRUGS (1)
  1. TECHNESCAN DTPA KIT [Suspect]
     Indication: DIAGNOSTIC PROCEDURE

REACTIONS (4)
  - CNS VENTRICULITIS [None]
  - CONFUSIONAL STATE [None]
  - HEADACHE [None]
  - MENINGITIS CHEMICAL [None]
